FAERS Safety Report 13565445 (Version 11)
Quarter: 2018Q1

REPORT INFORMATION
  Report Type: Report from Study
  Country: ZA (occurrence: ZA)
  Receive Date: 20170519
  Receipt Date: 20180129
  Transmission Date: 20180508
  Serious: Yes (Other)
  Sender: FDA-Public Use
  Company Number: ZA-BRISTOL-MYERS SQUIBB COMPANY-BMS-2017-042666

PATIENT
  Sex: Female

DRUGS (1)
  1. ABATACEPT [Suspect]
     Active Substance: ABATACEPT
     Indication: RHEUMATOID ARTHRITIS
     Dosage: 1000 MG, QMO
     Route: 042
     Dates: start: 20170323, end: 20170518

REACTIONS (9)
  - Pain in extremity [Unknown]
  - Musculoskeletal stiffness [Unknown]
  - Gait inability [Unknown]
  - Insomnia [Unknown]
  - Haemorrhage subcutaneous [Unknown]
  - Arthralgia [Unknown]
  - Cystitis [Unknown]
  - Musculoskeletal disorder [Not Recovered/Not Resolved]
  - Malaise [Unknown]
